FAERS Safety Report 15760329 (Version 1)
Quarter: 2018Q4

REPORT INFORMATION
  Report Type: Report from Study
  Country: JP (occurrence: JP)
  Receive Date: 20181226
  Receipt Date: 20181226
  Transmission Date: 20190205
  Serious: Yes (Life-Threatening)
  Sender: FDA-Public Use
  Company Number: JP-PFIZER INC-2018527653

PATIENT
  Age: 67 Year
  Sex: Female

DRUGS (13)
  1. RHEUMATREX [METHOTREXATE SODIUM] [Concomitant]
     Dosage: 6 MG, WEEKLY
     Route: 048
     Dates: end: 20161021
  2. GASTER [Concomitant]
     Active Substance: FAMOTIDINE
     Route: 048
  3. MAGMITT [Concomitant]
     Active Substance: MAGNESIUM OXIDE
     Route: 048
  4. RHEUMATREX [METHOTREXATE SODIUM] [Concomitant]
     Dosage: 4 MG, WEEKLY
     Route: 048
     Dates: start: 20161112, end: 20161224
  5. FOLIAMIN [Concomitant]
     Active Substance: FOLIC ACID
     Route: 048
  6. RHEUMATREX [METHOTREXATE SODIUM] [Concomitant]
     Dosage: 6 MG, WEEKLY
     Route: 048
     Dates: start: 20161224, end: 20180303
  7. ISCOTIN [Concomitant]
     Active Substance: ISONIAZID
     Dosage: UNK
  8. ISCOTIN [Concomitant]
     Active Substance: ISONIAZID
     Indication: ANTIBIOTIC PROPHYLAXIS
     Dosage: UNK
     Dates: start: 20150928
  9. BONOTEO [Concomitant]
     Active Substance: MINODRONIC ACID
     Route: 048
  10. EDIROL [Concomitant]
     Active Substance: ELDECALCITOL
     Route: 048
  11. XELJANZ [Suspect]
     Active Substance: TOFACITINIB CITRATE
     Dosage: 5 MG, 2X/DAY
     Route: 048
     Dates: start: 20161112, end: 20180303
  12. XELJANZ [Suspect]
     Active Substance: TOFACITINIB CITRATE
     Indication: RHEUMATOID ARTHRITIS
     Dosage: 5 MG, 2X/DAY
     Route: 048
     Dates: start: 20150928, end: 20161021
  13. CELECOX [Concomitant]
     Active Substance: CELECOXIB
     Route: 048

REACTIONS (1)
  - Lung neoplasm malignant [Unknown]

NARRATIVE: CASE EVENT DATE: 201803
